FAERS Safety Report 7339421-6 (Version None)
Quarter: 2011Q1

REPORT INFORMATION
  Report Type: 
  Country: None (occurrence: None)
  Receive Date: 20110308
  Receipt Date: 20101129
  Transmission Date: 20110831
  Serious: No
  Sender: FDA-Public Use
  Company Number: US-AMGEN-USASP2010004822

PATIENT
  Age: 81 Year
  Sex: Female

DRUGS (5)
  1. POTASSIUM [Concomitant]
  2. VITAMIN A [Concomitant]
  3. CHLOROTHIAZIDE [Concomitant]
  4. OMEPRAZOLE [Concomitant]
  5. PROLIA [Suspect]
     Indication: OSTEOPOROSIS POSTMENOPAUSAL
     Dosage: 60 MG, Q6MO
     Route: 058
     Dates: start: 20101001, end: 20101002

REACTIONS (2)
  - PAIN IN EXTREMITY [None]
  - BACK PAIN [None]
